FAERS Safety Report 14650708 (Version 2)
Quarter: 2018Q1

REPORT INFORMATION
  Report Type: Spontaneous
  Country: CI (occurrence: CI)
  Receive Date: 20180316
  Receipt Date: 20180330
  Transmission Date: 20180509
  Serious: Yes (Disabling)
  Sender: FDA-Public Use
  Company Number: CI-009507513-1803CIV004887

PATIENT
  Age: 47 Year
  Sex: Male
  Weight: 75 kg

DRUGS (2)
  1. CELESTENE [Suspect]
     Active Substance: BETAMETHASONE
     Indication: PHARYNGITIS
     Dosage: 3 TABLETS A DAY IN THE MORNING
     Route: 048
  2. ACUILIX [Concomitant]
     Active Substance: HYDROCHLOROTHIAZIDE\QUINAPRIL HYDROCHLORIDE
     Indication: HYPERTENSION
     Dosage: UNK

REACTIONS (1)
  - Hiccups [Recovered/Resolved]
